FAERS Safety Report 5768289-4 (Version None)
Quarter: 2008Q2

REPORT INFORMATION
  Report Type: 
  Country: None (occurrence: None)
  Receive Date: 20080609
  Receipt Date: 20080526
  Transmission Date: 20081010
  Serious: Yes (Life-Threatening, Hospitalization, Other)
  Sender: FDA-Public Use
  Company Number: S08-FRA-00640-01

PATIENT
  Age: 77 Year
  Sex: Female
  Weight: 44 kg

DRUGS (4)
  1. MEMANTINE HCL [Suspect]
     Indication: DEMENTIA ALZHEIMER'S TYPE
     Dosage: 10 MG BID PO
     Route: 048
     Dates: start: 20030101, end: 20071218
  2. CITALOPRAM HYDROBROMIDE [Concomitant]
  3. XANAX [Concomitant]
  4. IMOVANE (ZOPICLONE) [Concomitant]

REACTIONS (5)
  - ABNORMAL BEHAVIOUR [None]
  - ARTERIOSCLEROSIS [None]
  - MYOCARDIAL INFARCTION [None]
  - STRESS [None]
  - VENTRICULAR HYPOKINESIA [None]
